FAERS Safety Report 7064785-0 (Version None)
Quarter: 2010Q4

REPORT INFORMATION
  Report Type: 
  Country: None (occurrence: None)
  Receive Date: 20101027
  Receipt Date: 20101014
  Transmission Date: 20110411
  Serious: No
  Sender: FDA-Public Use
  Company Number: FR-ELI_LILLY_AND_COMPANY-FR201009005350

PATIENT
  Age: 60 Year
  Sex: Female
  Weight: 58 kg

DRUGS (3)
  1. CYMBALTA [Suspect]
     Indication: FIBROMYALGIA
     Dosage: 120 MG, DAILY (1/D)
     Route: 048
     Dates: start: 20090825, end: 20100829
  2. KETAMINE [Concomitant]
     Indication: PAIN
     Route: 058
     Dates: start: 20090401
  3. LEVOTHYROXINE SODIUM [Concomitant]
     Indication: HYPOTHYROIDISM
     Dosage: 16 GTT, UNK
     Route: 048
     Dates: start: 20000101

REACTIONS (4)
  - BLOOD AMYLASE INCREASED [None]
  - DIARRHOEA [None]
  - HEPATIC ENZYME INCREASED [None]
  - PANCREATIC ENZYMES INCREASED [None]
